FAERS Safety Report 6804847-3 (Version None)
Quarter: 2010Q2

REPORT INFORMATION
  Report Type: 
  Country: None (occurrence: None)
  Receive Date: 20100628
  Receipt Date: 20070612
  Transmission Date: 20101027
  Serious: No
  Sender: FDA-Public Use
  Company Number: US-PFIZER INC-2007049131

PATIENT
  Sex: Male
  Weight: 113.63 kg

DRUGS (8)
  1. XALATAN [Suspect]
     Indication: GLAUCOMA
     Dates: start: 20020101
  2. AVODART [Concomitant]
  3. PREVACID [Concomitant]
  4. GABAPENTIN [Concomitant]
  5. LORTAB [Concomitant]
  6. SOMA [Concomitant]
  7. VALIUM [Concomitant]
  8. WARFARIN SODIUM [Concomitant]

REACTIONS (2)
  - HEADACHE [None]
  - OCULAR HYPERAEMIA [None]
